FAERS Safety Report 5444239-5 (Version None)
Quarter: 2007Q3

REPORT INFORMATION
  Report Type: 
  Country: None (occurrence: None)
  Receive Date: 20070904
  Receipt Date: 20070904
  Transmission Date: 20080115
  Serious: Yes (Disabling, Other)
  Sender: FDA-Public Use
  Company Number: None

PATIENT
  Age: 49 Year
  Sex: Female
  Weight: 102.0593 kg

DRUGS (1)
  1. MIRENA [Suspect]
     Indication: HAEMORRHAGE
     Dates: start: 20041019, end: 20070831

REACTIONS (8)
  - ACNE [None]
  - BREAST CYST [None]
  - COMPLICATION OF DEVICE REMOVAL [None]
  - DRUG INEFFECTIVE [None]
  - HAEMORRHAGIC DISORDER [None]
  - HOT FLUSH [None]
  - MOOD SWINGS [None]
  - WEIGHT INCREASED [None]
